FAERS Safety Report 6243861-6 (Version None)
Quarter: 2009Q2

REPORT INFORMATION
  Report Type: 
  Country: None (occurrence: None)
  Receive Date: 20090623
  Receipt Date: 20090615
  Transmission Date: 20091009
  Serious: Yes (Other)
  Sender: FDA-Public Use
  Company Number: 2008US-23529

PATIENT
  Sex: Female

DRUGS (1)
  1. ISOFACE (ISOTRETINOIN, PROCAPS) [Suspect]
     Indication: DRUG USE FOR UNKNOWN INDICATION
     Dosage: 10 MG, 3/WEEK, ORAL
     Route: 048
     Dates: start: 20080615, end: 20080723

REACTIONS (6)
  - ALCOHOL USE [None]
  - DRUG EXPOSURE DURING PREGNANCY [None]
  - SELF-MEDICATION [None]
  - TREATMENT NONCOMPLIANCE [None]
  - UNINTENDED PREGNANCY [None]
  - WRONG DRUG ADMINISTERED [None]
